FAERS Safety Report 6669523-9 (Version None)
Quarter: 2010Q2

REPORT INFORMATION
  Report Type: 
  Country: None (occurrence: None)
  Receive Date: 20100406
  Receipt Date: 20100401
  Transmission Date: 20101027
  Serious: Yes (Life-Threatening, Hospitalization, Other)
  Sender: FDA-Public Use
  Company Number: PHHY2010JP08176

PATIENT
  Sex: Female

DRUGS (3)
  1. MENOAID COMBIPTACH [Suspect]
     Indication: MENOPAUSAL SYMPTOMS
     Dosage: UNK
     Route: 062
     Dates: start: 20090714, end: 20100131
  2. ESTRADIOL [Suspect]
     Indication: MENOPAUSAL SYMPTOMS
     Dosage: TWICE A WEEK
     Route: 048
     Dates: start: 20090801, end: 20100131
  3. MICONAZOLE NITRATE [Concomitant]
     Dosage: UNK
     Dates: start: 20090901, end: 20090929

REACTIONS (6)
  - ABDOMINAL PAIN [None]
  - BREAST CANCER [None]
  - BREAST OPERATION [None]
  - DIARRHOEA [None]
  - FEELING ABNORMAL [None]
  - GASTROENTERITIS [None]
